FAERS Safety Report 4840766-X (Version None)
Quarter: 2005Q4

REPORT INFORMATION
  Report Type: 
  Country: None (occurrence: None)
  Receive Date: 20051130
  Receipt Date: 20051018
  Transmission Date: 20060501
  Serious: Yes (Death, Hospitalization)
  Sender: FDA-Public Use
  Company Number: 2005UW15656

PATIENT
  Age: 23474 Day
  Sex: Male
  Weight: 97.7 kg

DRUGS (3)
  1. IRESSA [Suspect]
     Indication: PANCREATIC CARCINOMA
     Route: 048
     Dates: start: 20041203, end: 20050506
  2. PROTONIX [Concomitant]
     Dates: end: 20050506
  3. CREON [Concomitant]

REACTIONS (12)
  - ABDOMINAL PAIN [None]
  - BILE DUCT OBSTRUCTION [None]
  - CHILLS [None]
  - DEHYDRATION [None]
  - DISEASE PROGRESSION [None]
  - HICCUPS [None]
  - JAUNDICE [None]
  - MENTAL STATUS CHANGES [None]
  - NAUSEA [None]
  - PAIN [None]
  - RENAL FAILURE [None]
  - VOMITING [None]
